FAERS Safety Report 23537230 (Version 1)
Quarter: 2024Q1

REPORT INFORMATION
  Report Type: Spontaneous
  Country: DE (occurrence: DE)
  Receive Date: 20240219
  Receipt Date: 20240219
  Transmission Date: 20240410
  Serious: Yes (Life-Threatening)
  Sender: FDA-Public Use
  Company Number: None

PATIENT
  Age: 65 Year
  Sex: Female

DRUGS (8)
  1. METHOTREXATE [Suspect]
     Active Substance: METHOTREXATE
     Indication: Pruritus
     Dosage: SINCE 3 WEEKS
  2. BISOPROLOL [Concomitant]
     Active Substance: BISOPROLOL\BISOPROLOL FUMARATE
  3. FOLIC ACID [Concomitant]
     Active Substance: FOLIC ACID
  4. AMLODIPINE [Concomitant]
     Active Substance: AMLODIPINE BESYLATE
     Dosage: 10MG, 1-0-1
  5. SODIUM BICARBONATE [Concomitant]
     Active Substance: SODIUM BICARBONATE
     Dosage: 500MG, 1-1-1
  6. TORSEMIDE [Concomitant]
     Active Substance: TORSEMIDE
     Dosage: 10MG, 2-0-0
  7. CANDESARTAN [Concomitant]
     Active Substance: CANDESARTAN
     Dosage: 1,5-0-1,5
  8. ATORVASTATIN [Concomitant]
     Active Substance: ATORVASTATIN

REACTIONS (2)
  - Pancytopenia [Recovering/Resolving]
  - Mucosal inflammation [Recovering/Resolving]

NARRATIVE: CASE EVENT DATE: 20231211
